FAERS Safety Report 5121781-8 (Version None)
Quarter: 2006Q4

REPORT INFORMATION
  Report Type: 
  Country: None (occurrence: None)
  Receive Date: 20061006
  Receipt Date: 20060921
  Transmission Date: 20070319
  Serious: Yes (Hospitalization)
  Sender: FDA-Public Use
  Company Number: US-ROCHE-464567

PATIENT
  Age: 75 Year
  Sex: Female
  Weight: 60.3 kg

DRUGS (9)
  1. BUMETANIDE [Suspect]
     Indication: CARDIAC FAILURE CONGESTIVE
     Route: 048
     Dates: start: 20060615
  2. SPIRONOLACTONE [Suspect]
     Indication: CARDIAC FAILURE CONGESTIVE
     Route: 048
     Dates: start: 20060523
  3. CARVEDILOL [Suspect]
     Indication: CARDIAC FAILURE CONGESTIVE
     Dosage: DAILY DOSE REPORTED AS 6.25 MG, 2 IN 1 DAY
     Route: 048
     Dates: start: 20060518
  4. DIGOXIN [Suspect]
     Indication: CARDIAC FAILURE CONGESTIVE
     Route: 048
     Dates: start: 20060627
  5. ASPIRIN [Suspect]
     Indication: CORONARY ARTERY DISEASE
     Route: 065
     Dates: start: 20060515
  6. BLINDED NESIRITIDE [Suspect]
     Indication: CARDIAC FAILURE
     Dosage: BLINDED THERAPY
     Route: 065
     Dates: start: 20060530
  7. ISOSORBIDE DINITRATE [Suspect]
     Indication: CORONARY ARTERY DISEASE
     Route: 065
     Dates: start: 20060518
  8. ATORVASTATIN CALCIUM [Concomitant]
     Indication: BLOOD CHOLESTEROL INCREASED
  9. HYDRALAZINE HCL [Concomitant]
     Route: 048
     Dates: start: 20060522

REACTIONS (1)
  - CARDIAC FAILURE ACUTE [None]
